FAERS Safety Report 6746204-4 (Version None)
Quarter: 2010Q2

REPORT INFORMATION
  Report Type: 
  Country: None (occurrence: None)
  Receive Date: 20100528
  Receipt Date: 20100305
  Transmission Date: 20101027
  Serious: No
  Sender: FDA-Public Use
  Company Number: US-ASTRAZENECA-2010SE09994

PATIENT
  Sex: Male

DRUGS (2)
  1. PRILOSEC [Suspect]
     Route: 048
  2. NEXIUM [Suspect]
     Route: 048
     Dates: start: 20030101

REACTIONS (2)
  - ABDOMINAL DISCOMFORT [None]
  - DYSPHONIA [None]
